FAERS Safety Report 6603500-9 (Version None)
Quarter: 2010Q1

REPORT INFORMATION
  Report Type: 
  Country: None (occurrence: None)
  Receive Date: 20100226
  Receipt Date: 20090731
  Transmission Date: 20100710
  Serious: No
  Sender: FDA-Public Use
  Company Number: A0799894A

PATIENT
  Age: 51 Year
  Sex: Female

DRUGS (3)
  1. VALTREX [Suspect]
     Dosage: 1000MG TWICE PER DAY
     Route: 048
     Dates: start: 20090701
  2. BUPROPION HCL [Suspect]
     Indication: ANXIETY
     Dosage: 75MG TWICE PER DAY
     Route: 048
     Dates: start: 20090702
  3. AMBIEN [Concomitant]

REACTIONS (2)
  - CHAPPED LIPS [None]
  - DRY MOUTH [None]
